FAERS Safety Report 8536552-X (Version None)
Quarter: 2012Q3

REPORT INFORMATION
  Report Type: 
  Country: None (occurrence: None)
  Receive Date: 20120725
  Receipt Date: 20120719
  Transmission Date: 20120928
  Serious: Yes (Other)
  Sender: FDA-Public Use
  Company Number: CN-ASTRAZENECA-2012SE50886

PATIENT

DRUGS (1)
  1. LIDOCAINE [Suspect]
     Route: 065

REACTIONS (1)
  - ANGIOEDEMA [None]
